FAERS Safety Report 9863068 (Version 1)
Quarter: 2014Q1

REPORT INFORMATION
  Report Type: Spontaneous
  Country: IN (occurrence: IN)
  Receive Date: 20140203
  Receipt Date: 20140203
  Transmission Date: 20141002
  Serious: Yes (Life-Threatening, Hospitalization, Other)
  Sender: FDA-Public Use
  Company Number: IN-ASTRAZENECA-2014SE06639

PATIENT
  Age: 37 Year
  Sex: Female
  Weight: 60 kg

DRUGS (2)
  1. BUPIVACAINE [Suspect]
     Indication: SPINAL ANAESTHESIA
     Route: 037
  2. TRANEXAMIC ACID [Suspect]
     Indication: SPINAL ANAESTHESIA
     Route: 037

REACTIONS (8)
  - Wrong drug administered [Recovered/Resolved]
  - Myoclonus [Recovered/Resolved]
  - Apnoea [Recovered/Resolved]
  - Hypertension [Recovered/Resolved]
  - Tachycardia [Recovered/Resolved]
  - Extrasystoles [Recovered/Resolved]
  - Metabolic acidosis [Recovered/Resolved]
  - Brain oedema [Unknown]
